FAERS Safety Report 4660638-3 (Version None)
Quarter: 2005Q2

REPORT INFORMATION
  Report Type: 
  Country: None (occurrence: None)
  Receive Date: 20050512
  Receipt Date: 20050503
  Transmission Date: 20051028
  Serious: Yes (Hospitalization)
  Sender: FDA-Public Use
  Company Number: US-JNJFOC-20040405652

PATIENT
  Sex: Female
  Weight: 101.61 kg

DRUGS (8)
  1. REMICADE [Suspect]
     Route: 042
  2. REMICADE [Suspect]
     Indication: RHEUMATOID ARTHRITIS
     Dosage: 4 VIALS
     Route: 042
  3. METHOTREXATE [Concomitant]
  4. CELEBREX [Concomitant]
  5. LEUCOVORIN CALCIUM [Concomitant]
  6. PLAQUENIL [Concomitant]
  7. EFFEXOR [Concomitant]
  8. ATENOLOL [Concomitant]

REACTIONS (3)
  - INFLUENZA LIKE ILLNESS [None]
  - LUNG INFILTRATION [None]
  - PNEUMONIA PRIMARY ATYPICAL [None]
